FAERS Safety Report 23949575 (Version 2)
Quarter: 2024Q3

REPORT INFORMATION
  Report Type: Spontaneous
  Country: US (occurrence: None)
  Receive Date: 20240607
  Receipt Date: 20240704
  Transmission Date: 20241017
  Serious: Yes (Hospitalization, Other)
  Sender: ASTRAZENECA
  Company Number: 2024A126761

PATIENT
  Age: 71 Year
  Sex: Female

DRUGS (1)
  1. TRUQAP [Suspect]
     Active Substance: CAPIVASERTIB
     Route: 048

REACTIONS (6)
  - Angioedema [Recovered/Resolved]
  - Lethargy [Unknown]
  - Pneumonia [Unknown]
  - Urinary tract infection [Unknown]
  - Lip swelling [Recovered/Resolved]
  - Rash [Recovered/Resolved]
